FAERS Safety Report 10037943 (Version 1)
Quarter: 2014Q1

REPORT INFORMATION
  Report Type: Spontaneous
  Country: US (occurrence: None)
  Receive Date: 20140306
  Receipt Date: 20140306
  Transmission Date: 20141002
  Serious: Yes (Hospitalization)
  Sender: FDA-Public Use
  Company Number: 163-21880-12114130

PATIENT
  Age: 57 Year
  Sex: Female
  Weight: 83.46 kg

DRUGS (5)
  1. REVLIMID [Suspect]
     Indication: PLASMA CELL MYELOMA
     Route: 048
     Dates: start: 20110202, end: 20121117
  2. AMLODIPNE BESYLATE [Concomitant]
  3. CORVITE FE (CORVITE) [Concomitant]
  4. METOPROLOL SUCCINATE [Concomitant]
  5. POTASSIUM (POTASSIUM) [Concomitant]

REACTIONS (4)
  - Neuropathy peripheral [None]
  - White blood cell count decreased [None]
  - Fatigue [None]
  - Nasopharyngitis [None]
